FAERS Safety Report 21659426 (Version 1)
Quarter: 2022Q4

REPORT INFORMATION
  Report Type: Spontaneous
  Country: FR (occurrence: FR)
  Receive Date: 20221129
  Receipt Date: 20221129
  Transmission Date: 20230113
  Serious: Yes (Life-Threatening, Other)
  Sender: FDA-Public Use
  Company Number: None

PATIENT
  Age: 80 Year
  Sex: Female

DRUGS (6)
  1. ELIQUIS [Suspect]
     Active Substance: APIXABAN
     Indication: Thrombosis prophylaxis
     Route: 048
     Dates: end: 20221103
  2. LEVOTHYROXINE SODIUM [Concomitant]
     Active Substance: LEVOTHYROXINE SODIUM
     Indication: Product used for unknown indication
     Route: 048
     Dates: end: 20221103
  3. ESOMEPRAZOLE [Concomitant]
     Active Substance: ESOMEPRAZOLE
     Indication: Product used for unknown indication
     Route: 048
     Dates: end: 20221103
  4. RISEDRONATE SODIUM [Concomitant]
     Active Substance: RISEDRONATE SODIUM
     Indication: Product used for unknown indication
     Route: 048
     Dates: end: 20221103
  5. PREDNISONE [Concomitant]
     Active Substance: PREDNISONE
     Indication: Product used for unknown indication
     Route: 048
     Dates: end: 20221103
  6. TOCILIZUMAB [Concomitant]
     Active Substance: TOCILIZUMAB
     Indication: Product used for unknown indication
     Route: 042
     Dates: start: 202206

REACTIONS (1)
  - Pericardial haemorrhage [Recovered/Resolved]

NARRATIVE: CASE EVENT DATE: 20221103
